FAERS Safety Report 14347637 (Version 1)
Quarter: 2018Q1

REPORT INFORMATION
  Report Type: Spontaneous
  Country: US (occurrence: US)
  Receive Date: 20180102
  Receipt Date: 20180102
  Transmission Date: 20180509
  Serious: No
  Sender: FDA-Public Use
  Company Number: None

PATIENT
  Sex: Female

DRUGS (2)
  1. VIMOVO [Suspect]
     Active Substance: ESOMEPRAZOLE MAGNESIUM\NAPROXEN
     Indication: RHEUMATOID ARTHRITIS
     Route: 048
     Dates: start: 201405
  2. XELJANZ [Suspect]
     Active Substance: TOFACITINIB CITRATE
     Route: 048
     Dates: start: 201607

REACTIONS (2)
  - Therapy cessation [None]
  - Surgery [None]
